FAERS Safety Report 19854019 (Version 1)
Quarter: 2021Q3

REPORT INFORMATION
  Report Type: Spontaneous
  Country: US (occurrence: US)
  Receive Date: 20210920
  Receipt Date: 20210920
  Transmission Date: 20211014
  Serious: Yes (Hospitalization)
  Sender: FDA-Public Use
  Company Number: US-AMGEN-USASP2021141727

PATIENT

DRUGS (2)
  1. ERENUMAB [Suspect]
     Active Substance: ERENUMAB
     Indication: MIGRAINE
     Dosage: UNK
     Route: 065
     Dates: start: 20180501
  2. ERENUMAB [Suspect]
     Active Substance: ERENUMAB
     Dosage: UNK
     Route: 065
     Dates: start: 20190930

REACTIONS (2)
  - Migraine [Unknown]
  - Adverse reaction [Unknown]

NARRATIVE: CASE EVENT DATE: 2018
